FAERS Safety Report 5648499-7 (Version None)
Quarter: 2008Q1

REPORT INFORMATION
  Report Type: 
  Country: None (occurrence: None)
  Receive Date: 20080304
  Receipt Date: 20080225
  Transmission Date: 20080703
  Serious: Yes (Hospitalization)
  Sender: FDA-Public Use
  Company Number: PHRM2008FR00925

PATIENT
  Age: 38 Year
  Sex: Male

DRUGS (7)
  1. MEPRONIZINE [Concomitant]
     Route: 048
  2. TRANXENE [Concomitant]
     Route: 048
  3. STILNOX [Concomitant]
     Route: 048
  4. LEPONEX [Suspect]
     Dosage: FROM 50 TO 400 MG/DAY
     Route: 048
     Dates: start: 20071218, end: 20080102
  5. LEPONEX [Suspect]
     Dosage: 400 MG/DAY
     Route: 048
     Dates: start: 20080103, end: 20080113
  6. LEPONEX [Suspect]
     Dosage: 500 MG/DAY
     Route: 048
     Dates: start: 20080114, end: 20080121
  7. LEPONEX [Suspect]
     Dosage: 600 MG/DAY
     Dates: start: 20080122

REACTIONS (4)
  - CONDITION AGGRAVATED [None]
  - LEUKOCYTOSIS [None]
  - MYELOPROLIFERATIVE DISORDER [None]
  - NEUTROPHILIA [None]
